FAERS Safety Report 7126537-2 (Version None)
Quarter: 2010Q4

REPORT INFORMATION
  Report Type: 
  Country: None (occurrence: None)
  Receive Date: 20101129
  Receipt Date: 20101115
  Transmission Date: 20110411
  Serious: Yes (Hospitalization)
  Sender: FDA-Public Use
  Company Number: DE-MYLANLABS-2009S1006204

PATIENT
  Age: 77 Year
  Sex: Female
  Weight: 88 kg

DRUGS (12)
  1. BISOPROLOL [Suspect]
     Indication: TACHYARRHYTHMIA
     Route: 048
     Dates: start: 20080101, end: 20080414
  2. BISOPROLOL [Suspect]
     Route: 048
     Dates: start: 20080414
  3. DIGITOXIN [Suspect]
     Indication: TACHYARRHYTHMIA
     Route: 048
     Dates: start: 20080101, end: 20080414
  4. DIGITOXIN [Suspect]
     Route: 048
     Dates: start: 20080418
  5. FALITHROM [Suspect]
     Indication: PULMONARY EMBOLISM
     Route: 048
     Dates: start: 20080101, end: 20080414
  6. FALITHROM [Suspect]
     Route: 048
     Dates: start: 20080418
  7. CLEXANE [Suspect]
     Indication: PULMONARY EMBOLISM
     Route: 058
     Dates: start: 20080101, end: 20080414
  8. RAMIPRIL [Concomitant]
     Indication: HYPERTENSION
     Route: 048
     Dates: start: 20000101
  9. OMEP [Concomitant]
     Indication: GASTRITIS
     Route: 048
     Dates: start: 20080301
  10. FUROSEMIDE [Concomitant]
     Indication: HYPERTENSION
     Route: 048
     Dates: start: 20000101
  11. PENTAERYTHRITOL TETRANITRATE [Concomitant]
     Indication: ANGINA PECTORIS
     Route: 048
  12. PILOCARPINE HCL [Concomitant]
     Indication: GLAUCOMA
     Dosage: 1 TROPFEN ENTHALT CA. 1 MG PILOCARPIN UND 0.25 MG TIMOLOL
     Route: 047
     Dates: start: 20000101

REACTIONS (2)
  - ABDOMINAL WALL HAEMATOMA [None]
  - BRADYCARDIA [None]
